FAERS Safety Report 14195092 (Version 1)
Quarter: 2017Q4

REPORT INFORMATION
  Report Type: Spontaneous
  Country: US (occurrence: US)
  Receive Date: 20171116
  Receipt Date: 20171116
  Transmission Date: 20180321
  Serious: No
  Sender: FDA-Public Use
  Company Number: US-MISSION PHARMACAL COMPANY-2034291

PATIENT
  Age: 45 Year
  Sex: Female

DRUGS (1)
  1. THIOLA [Suspect]
     Active Substance: TIOPRONIN
     Indication: CYSTINURIA
     Route: 065
     Dates: start: 20171026

REACTIONS (3)
  - Dyspepsia [Not Recovered/Not Resolved]
  - Foreign body in respiratory tract [Unknown]
  - Diarrhoea [Recovered/Resolved]
